FAERS Safety Report 22265507 (Version 1)
Quarter: 2023Q2

REPORT INFORMATION
  Report Type: Spontaneous
  Country: RS (occurrence: RS)
  Receive Date: 20230428
  Receipt Date: 20230428
  Transmission Date: 20230722
  Serious: Yes (Other)
  Sender: FDA-Public Use
  Company Number: RS-009507513-2304SRB009862

PATIENT
  Sex: Male

DRUGS (3)
  1. PEMBROLIZUMAB [Suspect]
     Active Substance: PEMBROLIZUMAB
     Indication: Metastatic malignant melanoma
     Dates: start: 20190619, end: 202011
  2. PRILENAP [ENALAPRIL] [Concomitant]
     Indication: Hypertension
  3. PRESOLOL [METOPROLOL TARTRATE] [Concomitant]
     Indication: Hypertension

REACTIONS (14)
  - Cerebral haemorrhage [Unknown]
  - Brain oedema [Unknown]
  - Hemiplegia [Unknown]
  - Malignant neoplasm progression [Unknown]
  - Tumour pseudoprogression [Unknown]
  - Retroperitoneal lymphadenopathy [Recovered/Resolved]
  - Lymphadenopathy mediastinal [Recovered/Resolved]
  - Adrenal mass [Unknown]
  - Muscular weakness [Unknown]
  - Gait disturbance [Unknown]
  - General physical health deterioration [Unknown]
  - Therapy partial responder [Unknown]
  - Eastern Cooperative Oncology Group performance status worsened [Unknown]
  - Vision blurred [Unknown]

NARRATIVE: CASE EVENT DATE: 20190101
